FAERS Safety Report 7380221-9 (Version None)
Quarter: 2011Q1

REPORT INFORMATION
  Report Type: 
  Country: None (occurrence: None)
  Receive Date: 20110329
  Receipt Date: 20110321
  Transmission Date: 20110831
  Serious: Yes (Hospitalization)
  Sender: FDA-Public Use
  Company Number: US-B.I. PHARMACEUTICALS,INC./RIDGEFIELD-2011-BP-01153BP

PATIENT
  Age: 69 Year
  Sex: Male
  Weight: 94.8 kg

DRUGS (20)
  1. CARDIZEM [Concomitant]
  2. OXYGEN [Concomitant]
  3. PRADAXA [Suspect]
     Indication: ATRIAL FIBRILLATION
     Dosage: 300 MG
     Route: 048
  4. GLUCOPHAGE [Concomitant]
  5. ASCORBIC ACID [Concomitant]
     Dosage: 500 MG
  6. RYTHMOL [Concomitant]
  7. ASPIRIN [Concomitant]
     Dosage: 81 MG
  8. PREDNISONE [Concomitant]
  9. SYNTHROID [Concomitant]
     Dosage: 0.125 MG
  10. VITAMIN B-12 [Concomitant]
  11. MULTAQ [Concomitant]
     Dates: start: 20110131
  12. PEPCID [Concomitant]
  13. LOVAZA [Concomitant]
  14. AZATHIOPRINE [Concomitant]
  15. COUMADIN [Concomitant]
  16. VEQTHAMIS [Concomitant]
  17. VITAMIN B [Concomitant]
  18. HYDROCHLOROTHIAZIDE [Concomitant]
  19. DIOVAN [Concomitant]
  20. ZOCOR [Concomitant]

REACTIONS (10)
  - CHEST PAIN [None]
  - INFLUENZA [None]
  - DYSPNOEA EXERTIONAL [None]
  - POLYP [None]
  - LIMB INJURY [None]
  - DYSPNOEA [None]
  - CHEST DISCOMFORT [None]
  - OEDEMA [None]
  - DIZZINESS [None]
  - FALL [None]
